FAERS Safety Report 5005431-7 (Version None)
Quarter: 2006Q2

REPORT INFORMATION
  Report Type: 
  Country: None (occurrence: None)
  Receive Date: 20060518
  Receipt Date: 20060126
  Transmission Date: 20061013
  Serious: Yes (Hospitalization, Disabling)
  Sender: FDA-Public Use
  Company Number: US-MERCK-0601USA03571

PATIENT
  Age: 49 Year
  Sex: Male
  Weight: 99 kg

DRUGS (5)
  1. VIOXX [Suspect]
     Indication: PAIN IN EXTREMITY
     Route: 048
     Dates: start: 19991014, end: 19991201
  2. VIOXX [Suspect]
     Route: 048
     Dates: start: 20001201, end: 20020701
  3. VIOXX [Suspect]
     Indication: SHOULDER PAIN
     Route: 048
     Dates: start: 19991014, end: 19991201
  4. VIOXX [Suspect]
     Route: 048
     Dates: start: 20001201, end: 20020701
  5. VASOTEC [Concomitant]
     Indication: HYPERTENSION
     Route: 065
     Dates: start: 19970911, end: 20000102

REACTIONS (10)
  - ACUTE CORONARY SYNDROME [None]
  - ANXIETY [None]
  - BLOOD CHOLESTEROL INCREASED [None]
  - CHEMICAL POISONING [None]
  - CORONARY ARTERY DISEASE [None]
  - DYSPEPSIA [None]
  - GASTRIC DISORDER [None]
  - INSOMNIA [None]
  - NAUSEA [None]
  - SLEEP APNOEA SYNDROME [None]
